FAERS Safety Report 24705160 (Version 1)
Quarter: 2024Q4

REPORT INFORMATION
  Report Type: Spontaneous
  Country: US (occurrence: None)
  Receive Date: 20241205
  Receipt Date: 20241205
  Transmission Date: 20250114
  Serious: Yes (Hospitalization)
  Sender: Public
  Company Number: None

PATIENT
  Age: 69 Year
  Sex: Male
  Weight: 210 kg

DRUGS (2)
  1. APIXABAN [Suspect]
     Active Substance: APIXABAN
     Indication: Atrial fibrillation
     Dosage: FREQUENCY : TWICE A DAY;?
     Route: 048
     Dates: start: 20171109, end: 20210502
  2. ASPIRIN [Suspect]
     Active Substance: ASPIRIN
     Indication: Surgery
     Dosage: FREQUENCY : TWICE A DAY;?
     Route: 048
     Dates: end: 20210502

REACTIONS (5)
  - Upper gastrointestinal haemorrhage [None]
  - Chest pain [None]
  - Atrial fibrillation [None]
  - Haemoglobin decreased [None]
  - Haematocrit decreased [None]

NARRATIVE: CASE EVENT DATE: 20210501
